FAERS Safety Report 21514181 (Version 1)
Quarter: 2022Q4

REPORT INFORMATION
  Report Type: Spontaneous
  Country: CA (occurrence: CA)
  Receive Date: 20221027
  Receipt Date: 20221027
  Transmission Date: 20230112
  Serious: Yes (Other)
  Sender: FDA-Public Use
  Company Number: CA-BoehringerIngelheim-2022-BI-199290

PATIENT
  Age: 71 Year
  Sex: Female

DRUGS (1)
  1. JARDIANCE [Suspect]
     Active Substance: EMPAGLIFLOZIN
     Indication: Diabetes mellitus
     Route: 048

REACTIONS (5)
  - Perineal pain [Recovered/Resolved]
  - Fungal infection [Recovered/Resolved]
  - Genital discomfort [Recovered/Resolved]
  - Genital erythema [Recovered/Resolved]
  - Perineal infection [Recovered/Resolved]
